FAERS Safety Report 24087420 (Version 1)
Quarter: 2024Q3

REPORT INFORMATION
  Report Type: Spontaneous
  Country: CN (occurrence: CN)
  Receive Date: 20240714
  Receipt Date: 20240714
  Transmission Date: 20241016
  Serious: Yes (Disabling, Other)
  Sender: BAXTER
  Company Number: None

PATIENT
  Age: 75 Year
  Sex: Female
  Weight: 54 kg

DRUGS (2)
  1. CYCLOPHOSPHAMIDE [Suspect]
     Active Substance: CYCLOPHOSPHAMIDE
     Indication: Breast cancer female
     Dosage: 0.8 G, ONE TIME IN ONE DAY (Q3W), (ROUTE: INJECTION IN PUMP), AS PART OF TC REGIMEN, FIFTH CYCLE
     Route: 050
     Dates: start: 20240623, end: 20240623
  2. DOCETAXEL [Suspect]
     Active Substance: DOCETAXEL\DOCETAXEL ANHYDROUS
     Indication: Breast cancer female
     Dosage: 110 MG, ONE TIME IN ONE DAY (Q3W), AS PART OF TC REGIMEN, FIFTH CYCLE
     Route: 041
     Dates: start: 20240623, end: 20240623

REACTIONS (6)
  - Renal hydrocele [Unknown]
  - Platelet count decreased [Recovering/Resolving]
  - Anaemia [Recovering/Resolving]
  - Kidney infection [Unknown]
  - Pyrexia [Unknown]
  - C-reactive protein increased [Unknown]

NARRATIVE: CASE EVENT DATE: 20240626
